FAERS Safety Report 9862421 (Version 2)
Quarter: 2014Q1

REPORT INFORMATION
  Report Type: Spontaneous
  Country: GB (occurrence: GB)
  Receive Date: 20140203
  Receipt Date: 20140203
  Transmission Date: 20141002
  Serious: Yes (Other)
  Sender: FDA-Public Use
  Company Number: GB-ACTAVIS-2013-19333

PATIENT
  Sex: 0

DRUGS (11)
  1. DOCETAXEL ACTAVIS [Suspect]
     Indication: PRODUCT USED FOR UNKNOWN INDICATION
     Dosage: 140 MG, 80 MG, 20 MG
     Route: 042
  2. DOCETAXEL ACTAVIS [Suspect]
     Dosage: 140 MG, 80 MG, 20 MG
     Route: 041
  3. DOCETAXEL ACTAVIS [Suspect]
     Dosage: 140 MG, 80 MG, 20 MG
     Route: 041
  4. DOCETAXEL ACTAVIS [Suspect]
     Dosage: 140 MG, 80 MG, 20 MG
     Route: 041
  5. DOCETAXEL ACTAVIS [Suspect]
     Dosage: 140 MG, 80 MG, 20 MG
     Route: 041
  6. DOCETAXEL ACTAVIS [Suspect]
     Dosage: 140 MG, 80 MG, 20 MG
     Route: 041
  7. DOCETAXEL ACTAVIS [Suspect]
     Dosage: 140 MG, 80 MG, 20 MG
     Route: 041
  8. DOCETAXEL ACTAVIS [Suspect]
     Dosage: 140 MG, 80 MG, 20 MG
     Route: 041
  9. DOCETAXEL ACTAVIS [Suspect]
     Dosage: 140 MG, 80 MG, 20 MG
     Route: 041
  10. DOCETAXEL ACTAVIS [Suspect]
     Dosage: 140 MG, 80 MG, 20 MG
     Route: 041
  11. DOCETAXEL ACTAVIS [Suspect]
     Dosage: 140 MG, 80 MG, 20 MG
     Route: 041

REACTIONS (4)
  - Phlebitis [Not Recovered/Not Resolved]
  - Injection site pain [Not Recovered/Not Resolved]
  - Injection site discolouration [Not Recovered/Not Resolved]
  - Injection site vesicles [Not Recovered/Not Resolved]
